FAERS Safety Report 16084801 (Version 1)
Quarter: 2019Q1

REPORT INFORMATION
  Report Type: Spontaneous
  Country: US (occurrence: US)
  Receive Date: 20190318
  Receipt Date: 20190318
  Transmission Date: 20190418
  Serious: No
  Sender: FDA-Public Use
  Company Number: US-AVADEL SPECIALTY PHARMACEUTICALS, LLC-2019AVA00049

PATIENT
  Sex: Male
  Weight: 83.9 kg

DRUGS (7)
  1. BABY ASPIRIN [Concomitant]
     Active Substance: ASPIRIN
     Dosage: UNK, 1X/DAY AT NIGHT BEFORE HE GOES TO SLEEP
  2. NOCTIVA [Suspect]
     Active Substance: DESMOPRESSIN ACETATE
     Indication: NOCTURIA
     Dosage: 3.32 ?G, (1.66 MCG IN EACH NOSTRIL) 1X/DAY 30 MINUTES BEFORE BED
     Route: 045
     Dates: end: 201902
  3. COQ10 [Concomitant]
     Active Substance: UBIDECARENONE
     Dosage: UNK, 1X/DAY IN THE MORNING
  4. NIACIN. [Concomitant]
     Active Substance: NIACIN
     Dosage: UNK, 1X/DAY IN MORNING
  5. LISINOPRIL. [Concomitant]
     Active Substance: LISINOPRIL
     Dosage: 10 MG, 1X/DAY IN THE MORNING
  6. NOCTIVA [Suspect]
     Active Substance: DESMOPRESSIN ACETATE
     Indication: NOCTURIA
     Dosage: 0.83 ?G, 1X/DAY 30 MINUTES BEFORE BED
     Route: 045
  7. SIMVASTATIN. [Concomitant]
     Active Substance: SIMVASTATIN
     Dosage: UNK, 1X/DAY AT NIGHT

REACTIONS (7)
  - Anosmia [Recovering/Resolving]
  - Drug effect decreased [Recovered/Resolved]
  - Nasal congestion [Recovering/Resolving]
  - Rhinalgia [Recovered/Resolved]
  - Nasal discomfort [Recovered/Resolved]
  - Decreased appetite [Recovered/Resolved]
  - Dizziness [Recovered/Resolved]
